FAERS Safety Report 6041715-1 (Version None)
Quarter: 2009Q1

REPORT INFORMATION
  Report Type: 
  Country: None (occurrence: None)
  Receive Date: 20090116
  Receipt Date: 20081130
  Transmission Date: 20090719
  Serious: Yes (Hospitalization)
  Sender: FDA-Public Use
  Company Number: NL-PFIZER INC-2008087942

PATIENT

DRUGS (5)
  1. SUNITINIB MALATE [Suspect]
     Indication: HAEMANGIOPERICYTOMA
     Dosage: 12.5 MG, DAILY
     Route: 048
     Dates: start: 20081002
  2. IFOSFAMIDE [Suspect]
     Indication: HAEMANGIOPERICYTOMA
     Dosage: 2400 MG, CYCLIC 5 DAYS
     Route: 042
     Dates: start: 20081002
  3. BISOPROLOL [Concomitant]
  4. FENTANYL [Concomitant]
     Dosage: 1 EVERY 1 HOURS EVERY 3 DAYS
  5. OXYCODONE HCL [Concomitant]

REACTIONS (4)
  - BLOOD CREATININE INCREASED [None]
  - CONFUSIONAL STATE [None]
  - HAEMOGLOBIN DECREASED [None]
  - THROMBOCYTOPENIA [None]
